FAERS Safety Report 9323774 (Version 1)
Quarter: 2013Q2

REPORT INFORMATION
  Report Type: Spontaneous
  Country: SG (occurrence: SG)
  Receive Date: 20130603
  Receipt Date: 20130603
  Transmission Date: 20140414
  Serious: Yes (Other)
  Sender: FDA-Public Use
  Company Number: PHHY2013SG055358

PATIENT
  Age: 49 Year
  Sex: Male

DRUGS (2)
  1. MYFORTIC [Suspect]
     Indication: LIVER TRANSPLANT
     Dosage: UNK
  2. TACROLIMUS [Concomitant]

REACTIONS (3)
  - Hepatic steatosis [Unknown]
  - Metabolic disorder [Unknown]
  - Glycosylated haemoglobin increased [Unknown]
